FAERS Safety Report 17429287 (Version 1)
Quarter: 2020Q1

REPORT INFORMATION
  Report Type: Spontaneous
  Country: US (occurrence: US)
  Receive Date: 20200203
  Receipt Date: 20200203
  Transmission Date: 20200409
  Serious: Yes (Other)
  Sender: FDA-Public Use
  Company Number: None

PATIENT
  Age: 73 Year
  Sex: Female
  Weight: 54.43 kg

DRUGS (1)
  1. YUPELRI [Suspect]
     Active Substance: REVEFENACIN
     Indication: CHRONIC OBSTRUCTIVE PULMONARY DISEASE
     Dosage: ?          QUANTITY:1 UNK - UNKNOWN;?
     Route: 055
     Dates: start: 20200118, end: 20200118

REACTIONS (4)
  - Back pain [None]
  - Feeling abnormal [None]
  - Dyspnoea [None]
  - Palpitations [None]
